FAERS Safety Report 8270736-3 (Version None)
Quarter: 2012Q2

REPORT INFORMATION
  Report Type: 
  Country: None (occurrence: None)
  Receive Date: 20120410
  Receipt Date: 20120402
  Transmission Date: 20120825
  Serious: Yes (Other)
  Sender: FDA-Public Use
  Company Number: US-BAYER-2012-028642

PATIENT
  Age: 32 Year
  Sex: Female
  Weight: 102 kg

DRUGS (3)
  1. YASMIN [Suspect]
     Dosage: UNK
     Route: 048
     Dates: start: 20070101, end: 20111201
  2. MOTRIN [Concomitant]
     Dosage: UNK
  3. TYLENOL (CAPLET) [Concomitant]
     Dosage: UNK

REACTIONS (10)
  - MUSCLE SPASMS [None]
  - DEEP VEIN THROMBOSIS [None]
  - OEDEMA PERIPHERAL [None]
  - PAIN [None]
  - ANXIETY [None]
  - GAIT DISTURBANCE [None]
  - GENERAL PHYSICAL HEALTH DETERIORATION [None]
  - EMOTIONAL DISTRESS [None]
  - PAIN IN EXTREMITY [None]
  - THROMBOSIS [None]
